FAERS Safety Report 8059028-5 (Version None)
Quarter: 2012Q1

REPORT INFORMATION
  Report Type: 
  Country: None (occurrence: None)
  Receive Date: 20120120
  Receipt Date: 20110418
  Transmission Date: 20120608
  Serious: No
  Sender: FDA-Public Use
  Company Number: US-BAUSCH-2011BL002715

PATIENT
  Age: 56 Year
  Sex: Female

DRUGS (4)
  1. TRAZODONE HCL [Concomitant]
  2. ALAWAY [Suspect]
     Indication: EYE PRURITUS
     Route: 047
     Dates: start: 20110416, end: 20110416
  3. ALAWAY [Suspect]
     Indication: DRY EYE
     Route: 047
     Dates: start: 20110416, end: 20110416
  4. CORTISONE ACETATE [Concomitant]
     Route: 061

REACTIONS (2)
  - OCULAR HYPERAEMIA [None]
  - HEADACHE [None]
